FAERS Safety Report 25481702 (Version 1)
Quarter: 2025Q2

REPORT INFORMATION
  Report Type: Spontaneous
  Country: CA (occurrence: CA)
  Receive Date: 20250626
  Receipt Date: 20250626
  Transmission Date: 20250717
  Serious: Yes (Other)
  Sender: AMARIN
  Company Number: CA-Amarin Pharma  Inc-2025AMR000441

PATIENT
  Age: 56 Year

DRUGS (2)
  1. VASCEPA [Suspect]
     Active Substance: ICOSAPENT ETHYL
     Indication: Product used for unknown indication
     Route: 065
     Dates: start: 2021, end: 2022
  2. VASCEPA [Suspect]
     Active Substance: ICOSAPENT ETHYL
     Route: 065
     Dates: start: 2022

REACTIONS (3)
  - Hip arthroplasty [Unknown]
  - Procedural haemorrhage [Unknown]
  - Therapy interrupted [Unknown]

NARRATIVE: CASE EVENT DATE: 20220101
